FAERS Safety Report 6376138-9 (Version None)
Quarter: 2009Q3

REPORT INFORMATION
  Report Type: 
  Country: None (occurrence: None)
  Receive Date: 20090921
  Receipt Date: 20090911
  Transmission Date: 20100115
  Serious: Yes (Other)
  Sender: FDA-Public Use
  Company Number: 2009009199

PATIENT
  Age: 61 Year
  Sex: Female

DRUGS (10)
  1. MODIDODAL (MODAFINIL) (TABLETS) [Suspect]
     Indication: CATAPLEXY
     Dosage: SEE IMAGE
     Dates: start: 19930301
  2. MODIDODAL (MODAFINIL) (TABLETS) [Suspect]
     Indication: NARCOLEPSY
     Dosage: SEE IMAGE
     Dates: start: 19930301
  3. MODIDODAL (MODAFINIL) (TABLETS) [Suspect]
     Indication: CATAPLEXY
     Dosage: SEE IMAGE
     Dates: start: 19950615
  4. MODIDODAL (MODAFINIL) (TABLETS) [Suspect]
     Indication: NARCOLEPSY
     Dosage: SEE IMAGE
     Dates: start: 19950615
  5. MODIDODAL (MODAFINIL) (TABLETS) [Suspect]
     Indication: CATAPLEXY
     Dosage: SEE IMAGE
     Dates: start: 19950809
  6. MODIDODAL (MODAFINIL) (TABLETS) [Suspect]
     Indication: NARCOLEPSY
     Dosage: SEE IMAGE
     Dates: start: 19950809
  7. L-THYROXINE (LEVOTHYROXINE) [Concomitant]
  8. TOFRANIL (IMIPRAMINE HYDROCHLORIDE) (25 MILLIGRAM) [Concomitant]
  9. OLMIFON (ADRAFINIL) [Concomitant]
  10. SELEGILINE HCL [Concomitant]

REACTIONS (1)
  - HEPATITIS [None]
